FAERS Safety Report 4368816-8 (Version None)
Quarter: 2004Q2

REPORT INFORMATION
  Report Type: 
  Country: None (occurrence: None)
  Receive Date: 20040528
  Receipt Date: 20040514
  Transmission Date: 20050107
  Serious: Yes (Hospitalization)
  Sender: FDA-Public Use
  Company Number: 430001X04USA

PATIENT
  Age: 18 Year
  Sex: Male

DRUGS (2)
  1. NOVANTRONE [Suspect]
     Indication: LYMPHOCYTIC LEUKAEMIA
     Dosage: INTRAVENOUS
     Route: 042
  2. CYTARABINE [Concomitant]

REACTIONS (14)
  - CALCINOSIS [None]
  - CHILLS [None]
  - COMPUTERISED TOMOGRAM ABNORMAL [None]
  - ECHOCARDIOGRAM ABNORMAL [None]
  - EJECTION FRACTION DECREASED [None]
  - LYMPHOPROLIFERATIVE DISORDER [None]
  - MEDIASTINAL MASS [None]
  - OXYGEN SATURATION DECREASED [None]
  - PERICARDIAL EFFUSION [None]
  - PLEURAL EFFUSION [None]
  - PULMONARY OEDEMA [None]
  - RESPIRATORY DISTRESS [None]
  - THYMUS HYPERTROPHY [None]
  - VENTRICULAR HYPOKINESIA [None]
